FAERS Safety Report 5382910-4 (Version None)
Quarter: 2007Q3

REPORT INFORMATION
  Report Type: 
  Country: None (occurrence: None)
  Receive Date: 20070705
  Receipt Date: 20070705
  Transmission Date: 20080115
  Serious: Yes (Hospitalization, Other)
  Sender: FDA-Public Use
  Company Number: None

PATIENT
  Age: 41 Year
  Sex: Male
  Weight: 86.1834 kg

DRUGS (2)
  1. CYMBALTA [Suspect]
     Indication: DEPRESSION
     Dosage: CAN''T REMEMBER WHILL HAVE LOOK
     Dates: start: 20061001, end: 20070301
  2. CYMBALTA [Suspect]
     Indication: PAIN MANAGEMENT
     Dosage: CAN''T REMEMBER WHILL HAVE LOOK
     Dates: start: 20061001, end: 20070301

REACTIONS (10)
  - ANORGASMIA [None]
  - CHOKING [None]
  - DYSPHAGIA [None]
  - DYSURIA [None]
  - OESOPHAGEAL SPASM [None]
  - PAIN [None]
  - PNEUMONIA ASPIRATION [None]
  - SOMNOLENCE [None]
  - URINARY RETENTION [None]
  - VISION BLURRED [None]
